FAERS Safety Report 19769376 (Version 1)
Quarter: 2021Q3

REPORT INFORMATION
  Report Type: Report from Study
  Country: DE (occurrence: DE)
  Receive Date: 20210831
  Receipt Date: 20210831
  Transmission Date: 20211014
  Serious: Yes (Hospitalization)
  Sender: FDA-Public Use
  Company Number: DE-PFIZER INC-202101054180

PATIENT
  Age: 82 Year
  Sex: Male
  Weight: 72 kg

DRUGS (13)
  1. PREGABALIN. [Concomitant]
     Active Substance: PREGABALIN
     Route: 048
     Dates: end: 2021
  2. PANTOPRAZOL [PANTOPRAZOLE] [Concomitant]
     Active Substance: PANTOPRAZOLE
     Route: 048
     Dates: end: 2021
  3. ATEZOLIZUMAB. [Suspect]
     Active Substance: ATEZOLIZUMAB
     Indication: HEPATOCELLULAR CARCINOMA
     Dosage: 1200 MG
     Route: 065
     Dates: start: 20201222, end: 20210316
  4. FLECAINIDE [Concomitant]
     Active Substance: FLECAINIDE
     Dosage: FREQ:.5 D;
     Route: 048
     Dates: end: 2021
  5. RIVAROXABAN [Concomitant]
     Active Substance: RIVAROXABAN
     Route: 048
     Dates: end: 2021
  6. LACTULOSE. [Concomitant]
     Active Substance: LACTULOSE
     Route: 048
     Dates: end: 2021
  7. TROMCARDIN [Concomitant]
     Active Substance: MAGNESIUM ASPARTATE\POTASSIUM ASPARTATE
     Dosage: FREQ:.0.25 D;
     Route: 048
     Dates: end: 2021
  8. METAMIZOL [Concomitant]
     Active Substance: METAMIZOLE SODIUM
     Dosage: FREQ:.33 D;
     Route: 048
     Dates: end: 2021
  9. BEVACIZUMAB. [Suspect]
     Active Substance: BEVACIZUMAB
     Indication: HEPATOCELLULAR CARCINOMA
     Dosage: 1080 MG
     Dates: start: 20201222, end: 20210316
  10. VERAPAMIL [Concomitant]
     Active Substance: VERAPAMIL HYDROCHLORIDE
     Dosage: FREQ:.5 D;
     Route: 048
     Dates: end: 2021
  11. TORASEMID [Concomitant]
     Active Substance: TORSEMIDE
     Route: 048
     Dates: end: 2021
  12. LEVETIRACETAM. [Concomitant]
     Active Substance: LEVETIRACETAM
     Dosage: FREQ:.5 D;
     Route: 048
     Dates: end: 2021
  13. METOCLOPRAMID [METOCLOPRAMIDE] [Concomitant]
     Active Substance: METOCLOPRAMIDE
     Dosage: FREQ:.33 D;
     Route: 048
     Dates: end: 2021

REACTIONS (2)
  - General physical health deterioration [Recovered/Resolved]
  - Seizure [Recovered/Resolved]

NARRATIVE: CASE EVENT DATE: 20210106
